FAERS Safety Report 16648312 (Version 2)
Quarter: 2022Q1

REPORT INFORMATION
  Report Type: Spontaneous
  Country: US (occurrence: US)
  Receive Date: 20190730
  Receipt Date: 20220215
  Transmission Date: 20220423
  Serious: Yes (Hospitalization)
  Sender: FDA-Public Use
  Company Number: US-VERTEX PHARMACEUTICALS-2019-006932

PATIENT
  Sex: Female

DRUGS (7)
  1. SYMDEKO [Suspect]
     Active Substance: IVACAFTOR\TEZACAFTOR
     Indication: Cystic fibrosis
     Dosage: 1 TABLET (100MG/ 150MG AND 150 MG), BID
     Route: 048
     Dates: start: 20180504, end: 20191113
  2. CAYSTON [Concomitant]
     Active Substance: AZTREONAM
  3. ALTERRA [Concomitant]
  4. NYSTATIN [Concomitant]
     Active Substance: NYSTATIN
  5. LEVOTHYROXINE [Concomitant]
     Active Substance: LEVOTHYROXINE
  6. IPRATROPIUM [Concomitant]
     Active Substance: IPRATROPIUM
  7. ALVESCO [Concomitant]
     Active Substance: CICLESONIDE

REACTIONS (1)
  - Cystic fibrosis [Unknown]

NARRATIVE: CASE EVENT DATE: 20190101
